FAERS Safety Report 21271682 (Version 2)
Quarter: 2022Q3

REPORT INFORMATION
  Report Type: Spontaneous
  Country: US (occurrence: None)
  Receive Date: 20220830
  Receipt Date: 20220909
  Transmission Date: 20221026
  Serious: Yes (Hospitalization, Other)
  Sender: FDA-Public Use
  Company Number: 2022A294844

PATIENT
  Age: 67 Year
  Sex: Female
  Weight: 40.8 kg

DRUGS (1)
  1. SYMBICORT [Suspect]
     Active Substance: BUDESONIDE\FORMOTEROL FUMARATE DIHYDRATE
     Indication: Asthma
     Dosage: 160MCG/4.5MCG UNKNOWN
     Route: 055

REACTIONS (2)
  - Cerebrovascular accident [Unknown]
  - Monoplegia [Unknown]

NARRATIVE: CASE EVENT DATE: 20220101
